FAERS Safety Report 5117478-0 (Version None)
Quarter: 2006Q3

REPORT INFORMATION
  Report Type: 
  Country: None (occurrence: None)
  Receive Date: 20060929
  Receipt Date: 20060925
  Transmission Date: 20061208
  Serious: Yes (Hospitalization)
  Sender: FDA-Public Use
  Company Number: DE-AVENTIS-200612863DE

PATIENT
  Age: 66 Year
  Sex: Female

DRUGS (6)
  1. TAXOTERE [Suspect]
     Indication: BREAST CANCER
     Route: 042
     Dates: start: 20060817, end: 20060817
  2. ZOFRAN [Concomitant]
     Route: 048
     Dates: start: 20060817, end: 20060817
  3. ZOFRAN [Concomitant]
     Route: 042
     Dates: start: 20060817, end: 20060817
  4. MCP - TROPFEN [Concomitant]
     Dosage: DOSE: NOT REPORTED
  5. DEXAMETHASONE [Concomitant]
     Route: 048
     Dates: start: 20060728, end: 20060729
  6. DEXAMETHASONE [Concomitant]
     Route: 048
     Dates: start: 20060730, end: 20060731

REACTIONS (10)
  - ANAEMIA [None]
  - CATHETER RELATED INFECTION [None]
  - EXCORIATION [None]
  - FEBRILE NEUTROPENIA [None]
  - GOUTY ARTHRITIS [None]
  - HYPERURICAEMIA [None]
  - HYPOKALAEMIA [None]
  - ORAL INTAKE REDUCED [None]
  - POLYNEUROPATHY [None]
  - STOMATITIS [None]
